FAERS Safety Report 6708483-9 (Version None)
Quarter: 2010Q2

REPORT INFORMATION
  Report Type: 
  Country: None (occurrence: None)
  Receive Date: 20100503
  Receipt Date: 20091019
  Transmission Date: 20101027
  Serious: No
  Sender: FDA-Public Use
  Company Number: US-ASTRAZENECA-2009SE21016

PATIENT
  Age: 39 Year
  Sex: Female
  Weight: 113.4 kg

DRUGS (1)
  1. NEXIUM [Suspect]
     Dates: start: 20070101

REACTIONS (2)
  - LYMPHADENOPATHY [None]
  - TREATMENT NONCOMPLIANCE [None]
